FAERS Safety Report 22342096 (Version 1)
Quarter: 2023Q2

REPORT INFORMATION
  Report Type: Spontaneous
  Country: CA (occurrence: CA)
  Receive Date: 20230519
  Receipt Date: 20230519
  Transmission Date: 20230721
  Serious: Yes (Hospitalization)
  Sender: FDA-Public Use
  Company Number: CA-SLATE RUN PHARMACEUTICALS-23CA001595

PATIENT

DRUGS (3)
  1. CINACALCET HYDROCHLORIDE [Suspect]
     Active Substance: CINACALCET HYDROCHLORIDE
     Indication: Maternal exposure timing unspecified
     Dosage: 30 MILLIGRAM, BID
  2. CALCITONIN [Concomitant]
     Active Substance: CALCITONIN
     Indication: Maternal exposure timing unspecified
     Dosage: UNK, BID
  3. UNSPECIFIED INGREDIENT [Concomitant]
     Active Substance: UNSPECIFIED INGREDIENT
     Indication: Maternal exposure timing unspecified

REACTIONS (3)
  - Hypoparathyroidism [Recovered/Resolved]
  - Premature baby [Recovered/Resolved]
  - Foetal exposure during pregnancy [Unknown]
